FAERS Safety Report 8106790-9 (Version None)
Quarter: 2012Q1

REPORT INFORMATION
  Report Type: 
  Country: None (occurrence: None)
  Receive Date: 20120130
  Receipt Date: 20120116
  Transmission Date: 20120608
  Serious: Yes (Hospitalization, Other)
  Sender: FDA-Public Use
  Company Number: 2012MA000731

PATIENT
  Sex: Male
  Weight: 108.8633 kg

DRUGS (19)
  1. CHANTIX [Concomitant]
  2. PROAIR HFA [Concomitant]
  3. COUMADIN [Concomitant]
  4. VICODIN [Concomitant]
  5. COREG [Concomitant]
  6. SIMVASTATIN [Concomitant]
  7. TIAZAC [Concomitant]
  8. ALBUTEROL [Concomitant]
  9. ZOCOR [Concomitant]
  10. FLOMAX [Concomitant]
  11. ADVAIR DISKUS 100/50 [Concomitant]
  12. ALDACTONE [Concomitant]
  13. FLEXERIL [Concomitant]
  14. FUROSEMIDE [Concomitant]
  15. SPIRONOLACTONE [Concomitant]
  16. DIGOXIN [Suspect]
     Indication: PRODUCT USED FOR UNKNOWN INDICATION
     Dosage: 0.25 MG;QD;PO
     Route: 048
     Dates: start: 20070523, end: 20081012
  17. ASPIRIN [Concomitant]
  18. LISINOPRIL [Concomitant]
  19. MOTRIN [Concomitant]

REACTIONS (61)
  - DYSPNOEA [None]
  - TRANSIENT ISCHAEMIC ATTACK [None]
  - COUGH [None]
  - DIZZINESS [None]
  - DYSPHAGIA [None]
  - TREATMENT NONCOMPLIANCE [None]
  - ELECTROCARDIOGRAM ST-T CHANGE [None]
  - HYPERTENSION [None]
  - TRICUSPID VALVE INCOMPETENCE [None]
  - HYPOAESTHESIA [None]
  - ABDOMINAL DISTENSION [None]
  - ANGINA UNSTABLE [None]
  - COAGULOPATHY [None]
  - OEDEMA PERIPHERAL [None]
  - HYPERTENSIVE CARDIOMYOPATHY [None]
  - ISCHAEMIC CARDIOMYOPATHY [None]
  - MITRAL VALVE INCOMPETENCE [None]
  - CAROTID ARTERIOSCLEROSIS [None]
  - SINUS DISORDER [None]
  - CHRONIC OBSTRUCTIVE PULMONARY DISEASE [None]
  - PNEUMONIA [None]
  - FACIAL PARESIS [None]
  - ARTHRITIS [None]
  - PRESYNCOPE [None]
  - HYPERHIDROSIS [None]
  - ELECTROCARDIOGRAM QRS COMPLEX ABNORMAL [None]
  - EJECTION FRACTION DECREASED [None]
  - CAROTID BRUIT [None]
  - CARDIOMEGALY [None]
  - RALES [None]
  - APHASIA [None]
  - HAEMORRHAGIC ANAEMIA [None]
  - HYPOKINESIA [None]
  - CONSTIPATION [None]
  - PRURITUS [None]
  - BACK DISORDER [None]
  - DYSPNOEA PAROXYSMAL NOCTURNAL [None]
  - MYOCARDIAL INFARCTION [None]
  - MELAENA [None]
  - INTERNATIONAL NORMALISED RATIO INCREASED [None]
  - RESPIRATORY FAILURE [None]
  - LUNG DISORDER [None]
  - SUPRAVENTRICULAR EXTRASYSTOLES [None]
  - LEFT VENTRICULAR HYPERTROPHY [None]
  - RIGHT VENTRICULAR HYPERTROPHY [None]
  - VERTIGO [None]
  - VIITH NERVE PARALYSIS [None]
  - GENERAL PHYSICAL HEALTH DETERIORATION [None]
  - ABDOMINAL PAIN [None]
  - HYPERGLYCAEMIA [None]
  - ATRIAL FIBRILLATION [None]
  - PULMONARY HYPERTENSION [None]
  - AORTIC CALCIFICATION [None]
  - MUSCULOSKELETAL DISCOMFORT [None]
  - CARDIAC FAILURE CONGESTIVE [None]
  - DROOLING [None]
  - EPIGASTRIC DISCOMFORT [None]
  - GASTROINTESTINAL HAEMORRHAGE [None]
  - LEFT ATRIAL DILATATION [None]
  - CAROTID ARTERY STENOSIS [None]
  - RHONCHI [None]
